FAERS Safety Report 11920724 (Version 1)
Quarter: 2016Q1

REPORT INFORMATION
  Report Type: Spontaneous
  Country: US (occurrence: US)
  Receive Date: 20160115
  Receipt Date: 20160115
  Transmission Date: 20160526
  Serious: No
  Sender: FDA-Public Use
  Company Number: US-ASTELLAS-2015US025442

PATIENT
  Sex: Female

DRUGS (2)
  1. MYRBETRIQ [Suspect]
     Active Substance: MIRABEGRON
     Indication: HYPERTONIC BLADDER
     Route: 065
  2. MYRBETRIQ [Suspect]
     Active Substance: MIRABEGRON
     Route: 065
     Dates: end: 20150831

REACTIONS (6)
  - Chapped lips [Not Recovered/Not Resolved]
  - Plicated tongue [Not Recovered/Not Resolved]
  - Drug dose omission [Unknown]
  - Dry mouth [Not Recovered/Not Resolved]
  - Intentional product misuse [Unknown]
  - Cheilitis [Not Recovered/Not Resolved]
